FAERS Safety Report 9425415 (Version 1)
Quarter: 2013Q3

REPORT INFORMATION
  Report Type: Spontaneous
  Country: US (occurrence: US)
  Receive Date: 20130729
  Receipt Date: 20130729
  Transmission Date: 20140515
  Serious: Yes (Other)
  Sender: FDA-Public Use
  Company Number: US-ROXANE LABORATORIES, INC.-2013-RO-01228RO

PATIENT
  Age: 23 Year
  Sex: Female

DRUGS (3)
  1. AZATHIOPRINE [Suspect]
     Indication: ALLERGIC GRANULOMATOUS ANGIITIS
  2. CORTICOSTEROIDS [Suspect]
     Indication: ALLERGIC GRANULOMATOUS ANGIITIS
     Route: 048
  3. OMALIZUMAB [Suspect]
     Indication: ALLERGIC GRANULOMATOUS ANGIITIS

REACTIONS (1)
  - Osteoporosis [Unknown]
